FAERS Safety Report 8983348 (Version 1)
Quarter: 2012Q4

REPORT INFORMATION
  Report Type: 
  Country: GB (occurrence: GB)
  Receive Date: 20121224
  Receipt Date: 20121224
  Transmission Date: 20130627
  Serious: Yes (Death, Hospitalization)
  Sender: FDA-Public Use
  Company Number: GB-009507513-1212GBR006104

PATIENT
  Age: 55 Year
  Sex: Male

DRUGS (4)
  1. EZETIMIBE [Suspect]
     Indication: HYPERCHOLESTEROLAEMIA
     Dosage: 10 mg, UNK
     Dates: start: 200807, end: 200811
  2. ATORVASTATIN [Suspect]
     Indication: HYPERCHOLESTEROLAEMIA
     Dosage: UNK
     Dates: start: 200511, end: 200804
  3. ATORVASTATIN [Suspect]
     Dosage: UNK
     Dates: start: 200806, end: 200807
  4. SIMVASTATIN [Suspect]
     Indication: HYPERCHOLESTEROLAEMIA
     Dosage: UNK
     Dates: start: 200509, end: 200511

REACTIONS (1)
  - Motor neurone disease [Fatal]
